FAERS Safety Report 8419149-1 (Version None)
Quarter: 2012Q2

REPORT INFORMATION
  Report Type: 
  Country: None (occurrence: None)
  Receive Date: 20120607
  Receipt Date: 20120523
  Transmission Date: 20120825
  Serious: Yes (Hospitalization)
  Sender: FDA-Public Use
  Company Number: US-CELGENEUS-163-21880-12041806

PATIENT
  Sex: Male
  Weight: 85.034 kg

DRUGS (21)
  1. RITUXIMAB [Suspect]
     Route: 041
     Dates: start: 20120515
  2. ACYCLOVIR [Concomitant]
     Dosage: 400 MILLIGRAM
     Route: 048
  3. FLUCONAZOLE [Concomitant]
     Dosage: 100 MILLIGRAM
     Route: 048
  4. REVLIMID [Suspect]
     Dosage: 5 MILLIGRAM
     Route: 048
     Dates: start: 20120410, end: 20120412
  5. LEVOTHYROXINE SODIUM [Concomitant]
     Dosage: 100 MICROGRAM
     Route: 048
  6. ASPIRIN [Concomitant]
     Dosage: 81 MILLIGRAM
     Route: 048
  7. REVLIMID [Suspect]
     Dosage: 2.5 MILLIGRAM
     Route: 048
     Dates: start: 20120306
  8. RITUXIMAB [Suspect]
     Route: 041
     Dates: start: 20120424
  9. METOPROLOL SUCCINATE [Concomitant]
     Indication: BLOOD PRESSURE
     Dosage: 100 MILLIGRAM
     Route: 048
  10. REVLIMID [Suspect]
     Dosage: 5 MILLIGRAM
     Route: 048
     Dates: start: 20120423, end: 20120425
  11. METOPROLOL SUCCINATE [Concomitant]
     Indication: HEART RATE
     Dosage: 75 MILLIGRAM
     Route: 048
  12. METOPROLOL SUCCINATE [Concomitant]
     Dosage: 25 MILLIGRAM
     Route: 048
  13. METOPROLOL SUCCINATE [Concomitant]
     Dosage: 50 MILLIGRAM
     Route: 048
     Dates: start: 20120428
  14. RITUXIMAB [Suspect]
     Route: 041
  15. RITUXIMAB [Suspect]
     Route: 041
     Dates: start: 20120508
  16. PREDNISONE [Concomitant]
     Dosage: 5 MILLIGRAM
     Route: 048
  17. SEPTRA DS [Concomitant]
     Dosage: 1 TABLET
     Route: 048
  18. REVLIMID [Suspect]
     Dosage: 2.5 MILLIGRAM
     Route: 048
     Dates: start: 20120522
  19. RITUXIMAB [Suspect]
     Route: 041
     Dates: start: 20120522
  20. BACTRIM DS [Concomitant]
     Dosage: 1 TABLET
     Route: 048
  21. ALLOPURINOL [Concomitant]
     Dosage: 300 MILLIGRAM
     Route: 048

REACTIONS (3)
  - SYSTEMIC INFLAMMATORY RESPONSE SYNDROME [None]
  - ATRIAL FIBRILLATION [None]
  - HYPOTENSION [None]
